FAERS Safety Report 8300874-8 (Version None)
Quarter: 2012Q2

REPORT INFORMATION
  Report Type: 
  Country: None (occurrence: None)
  Receive Date: 20120419
  Receipt Date: 20120419
  Transmission Date: 20120825
  Serious: Yes (Hospitalization)
  Sender: FDA-Public Use
  Company Number: None

PATIENT
  Sex: Male
  Weight: 84.9 kg

DRUGS (4)
  1. TAXOTERE [Suspect]
     Dosage: 240 MG
  2. ELOXATIN [Suspect]
     Dosage: 850 MG
  3. XELODA [Suspect]
     Dosage: 70000 MG
  4. FLUOROURACIL [Suspect]
     Dosage: 8347.6 MG

REACTIONS (1)
  - LYMPHOPENIA [None]
